FAERS Safety Report 21703780 (Version 1)
Quarter: 2022Q4

REPORT INFORMATION
  Report Type: Report from Study
  Country: US (occurrence: US)
  Receive Date: 20221209
  Receipt Date: 20221209
  Transmission Date: 20230112
  Serious: No
  Sender: FDA-Public Use
  Company Number: US-ABBVIE-4182997

PATIENT
  Sex: Female

DRUGS (8)
  1. HUMIRA [Suspect]
     Active Substance: ADALIMUMAB
     Indication: Rheumatoid arthritis
     Route: 058
  2. BELBUCA [Concomitant]
     Active Substance: BUPRENORPHINE HYDROCHLORIDE
     Indication: Pain
  3. PROLIA [Concomitant]
     Active Substance: DENOSUMAB
     Indication: Osteoporosis
  4. ETODOLAC [Concomitant]
     Active Substance: ETODOLAC
     Indication: Inflammation
  5. SYMPROIC [Concomitant]
     Active Substance: NALDEMEDINE
     Indication: Gastric disorder
  6. AMITIZA [Concomitant]
     Active Substance: LUBIPROSTONE
     Indication: Gastric disorder
  7. PFIZER-BIONTECH COVID-19 VACCINE [Concomitant]
     Active Substance: TOZINAMERAN
     Indication: COVID-19 immunisation
     Dosage: BOOSTER VACCINE
     Route: 030
  8. PFIZER-BIONTECH COVID-19 VACCINE [Concomitant]
     Active Substance: TOZINAMERAN
     Indication: COVID-19 immunisation
     Dosage: ONE IN ONCE
     Route: 030

REACTIONS (5)
  - Herpes zoster [Unknown]
  - Osteoporosis [Unknown]
  - Body height decreased [Unknown]
  - Spinal cord disorder [Unknown]
  - Scoliosis [Unknown]
